FAERS Safety Report 19442861 (Version 2)
Quarter: 2021Q3

REPORT INFORMATION
  Report Type: Report from Study
  Country: BR (occurrence: BR)
  Receive Date: 20210621
  Receipt Date: 20210820
  Transmission Date: 20211014
  Serious: Yes (Other)
  Sender: FDA-Public Use
  Company Number: BR-UCBSA-2021029495

PATIENT
  Age: 43 Year
  Sex: Female
  Weight: 60 kg

DRUGS (4)
  1. DIPROGENTA [Concomitant]
     Active Substance: BETAMETHASONE DIPROPIONATE\GENTAMICIN SULFATE
     Indication: BLISTER
     Dosage: UNK
     Route: 061
     Dates: start: 20210609
  2. ALEGRA [Concomitant]
     Indication: BLISTER
     Dosage: 180 MILLIGRAM, ONCE DAILY (QD)
     Route: 048
     Dates: start: 20210609
  3. CERTOLIZUMAB PEGOL [Suspect]
     Active Substance: CERTOLIZUMAB PEGOL
     Indication: RHEUMATOID ARTHRITIS
     Dosage: 200 MILLIGRAM, EV 15 DAYS
     Route: 058
     Dates: start: 201908
  4. DEXAMETHASONE. [Concomitant]
     Active Substance: DEXAMETHASONE
     Indication: BLISTER
     Dosage: UNK
     Route: 061
     Dates: start: 201912

REACTIONS (4)
  - Intentional dose omission [Unknown]
  - Emotional disorder [Not Recovered/Not Resolved]
  - Dermatitis [Not Recovered/Not Resolved]
  - Hypersensitivity [Not Recovered/Not Resolved]

NARRATIVE: CASE EVENT DATE: 201912
